FAERS Safety Report 11004240 (Version 1)
Quarter: 2015Q2

REPORT INFORMATION
  Report Type: Spontaneous
  Country: US (occurrence: US)
  Receive Date: 20150409
  Receipt Date: 20150409
  Transmission Date: 20150821
  Serious: No
  Sender: FDA-Public Use
  Company Number: US-009507513-1504USA002721

PATIENT
  Age: 48 Year
  Sex: Female
  Weight: 155.1 kg

DRUGS (1)
  1. JANUVIA [Suspect]
     Active Substance: SITAGLIPTIN PHOSPHATE
     Indication: DIABETES MELLITUS MANAGEMENT
     Dosage: 1 PILL ONCE DAILY TAKEN BY MOUTH
     Route: 048
     Dates: start: 20140515, end: 20140624

REACTIONS (5)
  - Alcohol use [Unknown]
  - Alcohol poisoning [Unknown]
  - Nausea [Unknown]
  - Dizziness [Unknown]
  - Burning sensation [Unknown]
